FAERS Safety Report 13748356 (Version 2)
Quarter: 2017Q4

REPORT INFORMATION
  Report Type: Spontaneous
  Country: US (occurrence: US)
  Receive Date: 20170713
  Receipt Date: 20171211
  Transmission Date: 20180320
  Serious: No
  Sender: FDA-Public Use
  Company Number: US-PFIZER INC-2017301357

PATIENT
  Age: 59 Year
  Sex: Female

DRUGS (1)
  1. XELJANZ [Suspect]
     Active Substance: TOFACITINIB CITRATE
     Dosage: 5 MG, UNK

REACTIONS (29)
  - Dry mouth [Unknown]
  - Gait disturbance [Unknown]
  - Red blood cell sedimentation rate increased [Unknown]
  - Productive cough [Unknown]
  - Night sweats [Unknown]
  - Dysgraphia [Unknown]
  - Muscle atrophy [Unknown]
  - Dyspnoea [Unknown]
  - Wheezing [Unknown]
  - Cough [Unknown]
  - Headache [Unknown]
  - Blood glucose increased [Unknown]
  - Cardiac murmur [Unknown]
  - Dyspepsia [Unknown]
  - Waist circumference increased [Unknown]
  - Dry eye [Unknown]
  - Menopausal symptoms [Unknown]
  - Arthropathy [Unknown]
  - Arthralgia [Unknown]
  - Myalgia [Unknown]
  - Muscle spasms [Unknown]
  - Swelling [Unknown]
  - Hot flush [Unknown]
  - Musculoskeletal stiffness [Unknown]
  - Tenderness [Unknown]
  - Muscular weakness [Unknown]
  - Weight increased [Unknown]
  - Vulvovaginal dryness [Unknown]
  - Dizziness [Unknown]
